FAERS Safety Report 7701602-7 (Version None)
Quarter: 2011Q3

REPORT INFORMATION
  Report Type: 
  Country: None (occurrence: None)
  Receive Date: 20110822
  Receipt Date: 20110811
  Transmission Date: 20111222
  Serious: Yes (Hospitalization)
  Sender: FDA-Public Use
  Company Number: BR-ASTRAZENECA-2011SE48530

PATIENT
  Age: 61 Year
  Sex: Female
  Weight: 76 kg

DRUGS (6)
  1. SIMVASTATIN [Suspect]
     Indication: DYSLIPIDAEMIA
     Route: 048
     Dates: start: 19980101, end: 20080101
  2. LEVOTHYROXINE SODIUM [Concomitant]
     Indication: HYPOTHYROIDISM
     Route: 048
     Dates: start: 20010101
  3. ATACAND [Suspect]
     Indication: HYPERTENSION
     Dosage: DAILY
     Route: 048
     Dates: start: 20040101, end: 20110501
  4. METFORMIN HYDROCHLORIDE [Concomitant]
     Indication: DIABETES MELLITUS
     Route: 048
     Dates: start: 20040101
  5. CRESTOR [Suspect]
     Route: 048
  6. CRESTOR [Suspect]
     Indication: DYSLIPIDAEMIA
     Dosage: DAILY
     Route: 048
     Dates: start: 20080101

REACTIONS (8)
  - BLOOD TRIGLYCERIDES INCREASED [None]
  - DIABETES MELLITUS INADEQUATE CONTROL [None]
  - BLOOD PRESSURE INADEQUATELY CONTROLLED [None]
  - DRUG INEFFECTIVE [None]
  - THYROIDECTOMY [None]
  - ARTHRALGIA [None]
  - JOINT SWELLING [None]
  - GOITRE [None]
